FAERS Safety Report 9516024 (Version 1)
Quarter: 2013Q3

REPORT INFORMATION
  Report Type: Spontaneous
  Country: US (occurrence: US)
  Receive Date: 20130911
  Receipt Date: 20130911
  Transmission Date: 20140515
  Serious: No
  Sender: FDA-Public Use
  Company Number: US-ASTRAZENECA-2013SE51435

PATIENT
  Age: 79 Year
  Sex: Male
  Weight: 102.1 kg

DRUGS (6)
  1. SYMBICORT [Suspect]
     Indication: CHRONIC OBSTRUCTIVE PULMONARY DISEASE
     Dosage: 160/4.5 MCG 2 PUFFS BID
     Route: 055
     Dates: start: 201304
  2. LISINOPRIL [Suspect]
     Indication: BLOOD PRESSURE ABNORMAL
     Route: 048
  3. LOVASTATIN [Concomitant]
  4. WARFARIN [Concomitant]
     Dates: start: 201305
  5. POTASSIUM [Concomitant]
  6. FUROSEMIDE [Concomitant]

REACTIONS (2)
  - Weight increased [Unknown]
  - Intentional drug misuse [Unknown]
